FAERS Safety Report 20246270 (Version 5)
Quarter: 2022Q2

REPORT INFORMATION
  Report Type: Report from Study
  Country: DE (occurrence: DE)
  Receive Date: 20211229
  Receipt Date: 20220404
  Transmission Date: 20220721
  Serious: Yes (Hospitalization, Other)
  Sender: FDA-Public Use
  Company Number: DE-BRISTOL-MYERS SQUIBB COMPANY-BMS-2021-133541

PATIENT
  Age: 66 Year
  Sex: Female
  Weight: 62 kg

DRUGS (14)
  1. CARBOPLATIN [Suspect]
     Active Substance: CARBOPLATIN
     Indication: Non-small cell lung cancer
     Dosage: ON 02-NOV-2020 - THE PATIENT RECEIVED 236 MG OF CARBOPLATIN.
     Route: 065
     Dates: start: 20200903, end: 20201102
  2. PACLITAXEL [Suspect]
     Active Substance: PACLITAXEL
     Indication: Non-small cell lung cancer
     Dosage: ON 02-NOV-2020, THE PATIENT RECEIVED 74 MG OF PACLITAXEL.
     Route: 065
     Dates: start: 20200903, end: 20201102
  3. NIVOLUMAB [Suspect]
     Active Substance: NIVOLUMAB
     Indication: Non-small cell lung cancer
     Dosage: ON 31-AUG-2021, PATIENT RECEIVED NIVOLUMAB (480 MG).
     Route: 042
     Dates: start: 20200903, end: 20210831
  4. JANUVIA [Concomitant]
     Active Substance: SITAGLIPTIN PHOSPHATE
     Indication: Product used for unknown indication
     Dosage: BD; TWICE PER DAY
     Route: 048
     Dates: start: 20200810
  5. JANUVIA [Concomitant]
     Active Substance: SITAGLIPTIN PHOSPHATE
  6. CETIRIZINE HYDROCHLORIDE [Concomitant]
     Active Substance: CETIRIZINE HYDROCHLORIDE
     Indication: Product used for unknown indication
     Dosage: 1 DF - AD LIBITUM
     Route: 048
     Dates: start: 20210201
  7. CETIRIZINE HYDROCHLORIDE [Concomitant]
     Active Substance: CETIRIZINE HYDROCHLORIDE
  8. COMIRNATY [Concomitant]
     Active Substance: TOZINAMERAN
     Indication: Prophylaxis
     Dosage: 1 DF - 1 UNIT, ONCE
     Route: 030
     Dates: start: 20211201, end: 20211201
  9. COMIRNATY [Concomitant]
     Active Substance: TOZINAMERAN
  10. VAXZEVRIA [Concomitant]
     Active Substance: AZD-1222
     Indication: Prophylaxis
     Route: 030
     Dates: start: 20210403
  11. VAXZEVRIA [Concomitant]
     Active Substance: AZD-1222
     Route: 030
     Dates: start: 20210626
  12. METFORMIN [Concomitant]
     Active Substance: METFORMIN HYDROCHLORIDE
     Indication: Product used for unknown indication
     Dosage: 850 MILLIGRAM, BID
     Route: 048
     Dates: start: 20200810
  13. ALBUTEROL [Concomitant]
     Active Substance: ALBUTEROL
     Indication: Product used for unknown indication
     Dosage: 1 DOSAGE FORM, AS NEEDED
     Route: 055
     Dates: start: 20210501
  14. TOUJEO [Concomitant]
     Active Substance: INSULIN GLARGINE
     Indication: Product used for unknown indication
     Dosage: 1 DOSAGE FORM= 10 UNITS NOS; DAILY
     Route: 058
     Dates: start: 20200817

REACTIONS (1)
  - Cardiac failure [Recovered/Resolved]

NARRATIVE: CASE EVENT DATE: 20211202
